FAERS Safety Report 15698544 (Version 1)
Quarter: 2018Q4

REPORT INFORMATION
  Report Type: Spontaneous
  Country: ZA (occurrence: ZA)
  Receive Date: 20181207
  Receipt Date: 20181207
  Transmission Date: 20190205
  Serious: Yes (Other)
  Sender: FDA-Public Use
  Company Number: ZA-CIPLA LTD.-2018ZA23385

PATIENT

DRUGS (2)
  1. WARFARIN [Suspect]
     Active Substance: WARFARIN
     Indication: ANTICOAGULANT THERAPY
     Dosage: UNK, UPTO 6 WEEKS GESTATION
     Route: 065
  2. HEPARIN [Suspect]
     Active Substance: HEPARIN SODIUM
     Indication: ANTICOAGULANT THERAPY
     Dosage: UNK, FROM 6 TO 11 WEEKS OF GESTATION
     Route: 042

REACTIONS (4)
  - Haemorrhage [Unknown]
  - Haemoglobin decreased [Unknown]
  - Shock [Unknown]
  - Exposure during pregnancy [Unknown]
